FAERS Safety Report 10212787 (Version 1)
Quarter: 2014Q2

REPORT INFORMATION
  Report Type: Spontaneous
  Country: US (occurrence: US)
  Receive Date: 20140602
  Receipt Date: 20140602
  Transmission Date: 20141212
  Serious: No
  Sender: FDA-Public Use
  Company Number: US-AMGEN-USASP2014039188

PATIENT
  Age: 51 Year
  Sex: Female

DRUGS (1)
  1. ENBREL [Suspect]
     Indication: SARCOIDOSIS
     Dosage: 50 MG, QWK
     Route: 065
     Dates: start: 20140502, end: 20140522

REACTIONS (2)
  - Swollen tongue [Recovered/Resolved]
  - Tongue biting [Recovered/Resolved]
